FAERS Safety Report 6200949-3 (Version None)
Quarter: 2009Q2

REPORT INFORMATION
  Report Type: 
  Country: None (occurrence: None)
  Receive Date: 20090523
  Receipt Date: 20081121
  Transmission Date: 20091009
  Serious: No
  Sender: FDA-Public Use
  Company Number: US-ALEXION-A200800365

PATIENT
  Sex: Male

DRUGS (2)
  1. SOLIRIS [Suspect]
     Indication: PAROXYSMAL NOCTURNAL HAEMOGLOBINURIA
     Dates: end: 20081009
  2. STEROIDS [Concomitant]
     Dosage: BEING WEANED OFF

REACTIONS (1)
  - BLOOD PRESSURE INCREASED [None]
